FAERS Safety Report 5091575-0 (Version None)
Quarter: 2006Q3

REPORT INFORMATION
  Report Type: 
  Country: None (occurrence: None)
  Receive Date: 20060829
  Receipt Date: 20060818
  Transmission Date: 20061208
  Serious: Yes (Hospitalization, Other)
  Sender: FDA-Public Use
  Company Number: DE-JNJFOC-20060804722

PATIENT
  Sex: Male

DRUGS (1)
  1. HALOPERIDOL DECANOATE [Suspect]
     Indication: ACUTE PSYCHOSIS
     Route: 042

REACTIONS (2)
  - DRUG ADMINISTRATION ERROR [None]
  - OVERDOSE [None]
